FAERS Safety Report 18701852 (Version 1)
Quarter: 2021Q1

REPORT INFORMATION
  Report Type: Spontaneous
  Country: US (occurrence: US)
  Receive Date: 20210105
  Receipt Date: 20210105
  Transmission Date: 20210419
  Serious: Yes (Death)
  Sender: FDA-Public Use
  Company Number: None

PATIENT
  Age: 63 Year

DRUGS (4)
  1. CALCIUM [Concomitant]
     Active Substance: CALCIUM
     Dates: start: 20191211
  2. LETROZOLE. [Concomitant]
     Active Substance: LETROZOLE
     Dates: start: 20191211
  3. CAPECITABINE. [Suspect]
     Active Substance: CAPECITABINE
     Indication: BREAST CANCER
     Route: 048
     Dates: start: 20201204
  4. ALPRAZOLAM. [Concomitant]
     Active Substance: ALPRAZOLAM
     Dates: start: 20201129

REACTIONS (1)
  - Death [None]

NARRATIVE: CASE EVENT DATE: 20210104
